FAERS Safety Report 26010369 (Version 2)
Quarter: 2025Q4

REPORT INFORMATION
  Report Type: Spontaneous
  Country: JP (occurrence: JP)
  Receive Date: 20251107
  Receipt Date: 20251126
  Transmission Date: 20260118
  Serious: Yes (Death)
  Sender: DAIICHI
  Company Number: JP-DSJP-DS-2025-173939-JP

PATIENT
  Age: 64 Year

DRUGS (1)
  1. ENHERTU [Suspect]
     Active Substance: FAM-TRASTUZUMAB DERUXTECAN-NXKI
     Indication: HER2 low breast cancer
     Dosage: 2.7 MG/KG, ONCE EVERY 3 WK
     Route: 041

REACTIONS (3)
  - Disease progression [Fatal]
  - Nausea [Unknown]
  - Underdose [Unknown]
